FAERS Safety Report 23437950 (Version 1)
Quarter: 2024Q1

REPORT INFORMATION
  Report Type: Spontaneous
  Country: US (occurrence: US)
  Receive Date: 20240124
  Receipt Date: 20240124
  Transmission Date: 20240410
  Serious: Yes (Hospitalization)
  Sender: FDA-Public Use
  Company Number: US-TEVA-VS-3147022

PATIENT
  Age: 81 Year

DRUGS (2)
  1. LEVOFLOXACIN [Suspect]
     Active Substance: LEVOFLOXACIN
     Indication: Product used for unknown indication
     Route: 065
  2. CIMETIDINE [Suspect]
     Active Substance: CIMETIDINE
     Indication: Product used for unknown indication
     Route: 065

REACTIONS (5)
  - Long QT syndrome [Recovered/Resolved]
  - Ventricular tachycardia [Recovering/Resolving]
  - Wolff-Parkinson-White syndrome [Recovering/Resolving]
  - Blood potassium decreased [Recovering/Resolving]
  - Torsade de pointes [Recovered/Resolved]
